FAERS Safety Report 9220593 (Version 1)
Quarter: 2013Q2

REPORT INFORMATION
  Report Type: Report from Study
  Country: JP (occurrence: JP)
  Receive Date: 20130409
  Receipt Date: 20130409
  Transmission Date: 20140414
  Serious: Yes (Hospitalization)
  Sender: FDA-Public Use
  Company Number: JP-009507513-2012SP021090

PATIENT
  Age: 43 Year
  Sex: Female
  Weight: 60.9 kg

DRUGS (5)
  1. ASENAPINE MALEATE-SCHIZOPHRENIA [Suspect]
     Indication: SCHIZOPHRENIA
     Dosage: 5 MG, BID
     Route: 060
     Dates: start: 20110711, end: 20120417
  2. SENNOSIDES [Concomitant]
     Indication: CONSTIPATION
     Dosage: 48 MG, QD
     Route: 048
     Dates: start: 20110406
  3. MAGLAX [Concomitant]
     Indication: CONSTIPATION
     Dosage: 2 G, QD
     Route: 048
     Dates: start: 20110406
  4. LENDORMIN [Concomitant]
     Indication: INSOMNIA
     Dosage: 0.25 MG, QD
     Route: 048
     Dates: start: 20110413
  5. WYPAX [Concomitant]
     Indication: INSOMNIA
     Dosage: 1 MG, QD
     Route: 048
     Dates: start: 20110420

REACTIONS (2)
  - Water intoxication [Recovered/Resolved]
  - Neuroleptic malignant syndrome [Recovered/Resolved]
